FAERS Safety Report 14586683 (Version 1)
Quarter: 2018Q1

REPORT INFORMATION
  Report Type: Other
  Country: SK (occurrence: SK)
  Receive Date: 20180301
  Receipt Date: 20180301
  Transmission Date: 20180509
  Serious: Yes (Other)
  Sender: FDA-Public Use
  Company Number: SK-GLENMARK PHARMACEUTICALS-2017GMK032707

PATIENT

DRUGS (1)
  1. BENDAMUSTINE [Suspect]
     Active Substance: BENDAMUSTINE
     Indication: CHRONIC LYMPHOCYTIC LEUKAEMIA RECURRENT
     Dosage: 60 MG/M2, UNK
     Route: 065
     Dates: start: 20151201, end: 20160501

REACTIONS (5)
  - Hepatosplenomegaly [Unknown]
  - Anaemia [Unknown]
  - Ileus [Unknown]
  - Lymphadenopathy [Unknown]
  - Bone marrow infiltration [Unknown]
